FAERS Safety Report 21365638 (Version 12)
Quarter: 2022Q4

REPORT INFORMATION
  Report Type: Report from Study
  Country: GB (occurrence: None)
  Receive Date: 20220922
  Receipt Date: 20221122
  Transmission Date: 20230113
  Serious: Yes (Hospitalization)
  Sender: FDA-Public Use
  Company Number: GB-Eisai Medical Research-EC-2022-120370

PATIENT
  Age: 61 Year
  Sex: Male
  Weight: 68 kg

DRUGS (31)
  1. LENVATINIB [Suspect]
     Active Substance: LENVATINIB
     Indication: Oesophageal cancer metastatic
     Route: 048
     Dates: start: 20220627, end: 20220712
  2. LENVATINIB [Suspect]
     Active Substance: LENVATINIB
     Route: 048
     Dates: start: 20220916
  3. PEMBROLIZUMAB [Suspect]
     Active Substance: PEMBROLIZUMAB
     Indication: Oesophageal cancer metastatic
     Route: 041
     Dates: start: 20220627, end: 20220627
  4. PEMBROLIZUMAB [Suspect]
     Active Substance: PEMBROLIZUMAB
     Route: 041
     Dates: start: 20220916, end: 20220916
  5. OXALIPLATIN [Suspect]
     Active Substance: OXALIPLATIN
     Indication: Oesophageal cancer metastatic
     Dosage: DOSE UNKNOWN
     Route: 041
     Dates: start: 20220627, end: 20220627
  6. OXALIPLATIN [Suspect]
     Active Substance: OXALIPLATIN
     Dosage: DOSE UNKNOWN
     Route: 041
     Dates: start: 20220712, end: 20220812
  7. LEUCOVORIN [Suspect]
     Active Substance: LEUCOVORIN
     Indication: Oesophageal cancer metastatic
     Dosage: DOSE UNKNOWN
     Route: 041
     Dates: start: 20220627, end: 20220627
  8. LEUCOVORIN [Suspect]
     Active Substance: LEUCOVORIN
     Dosage: DOSE UNKNOWN
     Route: 041
     Dates: start: 20220712, end: 20220812
  9. FLUOROURACIL [Suspect]
     Active Substance: FLUOROURACIL
     Indication: Oesophageal cancer metastatic
     Dosage: DOSE UNKNOWN (BOLUS)
     Route: 040
     Dates: start: 20220627, end: 20220627
  10. FLUOROURACIL [Suspect]
     Active Substance: FLUOROURACIL
     Dosage: DOSE UNKNOWN
     Route: 042
     Dates: start: 20220627, end: 20220629
  11. FLUOROURACIL [Suspect]
     Active Substance: FLUOROURACIL
     Dosage: DOSE UNKNOWN (BOLUS)
     Route: 040
     Dates: start: 20220712, end: 20220812
  12. FLUOROURACIL [Suspect]
     Active Substance: FLUOROURACIL
     Dosage: DOSE UNKNOWN
     Route: 042
     Dates: start: 20220712, end: 20220814
  13. TRAMADOL HYDROCHLORIDE [Concomitant]
     Active Substance: TRAMADOL HYDROCHLORIDE
     Dates: start: 201301
  14. TAMSULOSIN HYDROCHLORIDE [Concomitant]
     Active Substance: TAMSULOSIN HYDROCHLORIDE
     Dates: start: 20161209
  15. FINASTERIDE [Concomitant]
     Active Substance: FINASTERIDE
     Dates: start: 20161220
  16. ESOMEPRAZOLE [Concomitant]
     Active Substance: ESOMEPRAZOLE
     Dates: start: 20220609, end: 20221101
  17. SUCRALFATE [Concomitant]
     Active Substance: SUCRALFATE
     Dates: start: 20220609
  18. OXETHAZAINE [Concomitant]
     Active Substance: OXETHAZAINE
     Dates: start: 20220613
  19. ZOPICLONE [Concomitant]
     Active Substance: ZOPICLONE
     Dates: start: 20220616
  20. ORAMORPH SR SUSTAINED RELEASE [Concomitant]
     Active Substance: MORPHINE SULFATE
     Dates: start: 20220616, end: 20221013
  21. MORPHINE SULFATE [Concomitant]
     Active Substance: MORPHINE SULFATE
     Dates: start: 20220617
  22. SENNA LEAF [Concomitant]
     Active Substance: SENNA LEAF
     Dates: start: 20220617, end: 20221030
  23. POLYETHYLENE GLYCOL 3350\POTASSIUM CHLORIDE\SODIUM BICARBONATE\SODIUM [Concomitant]
     Active Substance: POLYETHYLENE GLYCOL 3350\POTASSIUM CHLORIDE\SODIUM BICARBONATE\SODIUM CHLORIDE
     Dates: start: 20220617, end: 20221030
  24. ONDANSETRON [Concomitant]
     Active Substance: ONDANSETRON
     Dates: start: 20220618, end: 20220627
  25. AMOXICILLIN [Concomitant]
     Active Substance: AMOXICILLIN
     Dates: start: 20220619, end: 20220625
  26. ACETAMINOPHEN [Concomitant]
     Active Substance: ACETAMINOPHEN
     Dates: start: 20220619
  27. PEPTAC [CALCIUM CARBONATE;SODIUM ALGINATE;SODIUM BICARBONATE] [Concomitant]
     Dates: start: 20220619
  28. METRONIDAZOLE [Concomitant]
     Active Substance: METRONIDAZOLE
     Dates: start: 20220621, end: 20220625
  29. METOCLOPRAMIDE [Concomitant]
     Active Substance: METOCLOPRAMIDE
     Dates: start: 20220622
  30. DEXAMETHASONE [Concomitant]
     Active Substance: DEXAMETHASONE
     Dates: start: 20220627, end: 20220630
  31. LOPERAMIDE [Concomitant]
     Active Substance: LOPERAMIDE
     Dates: start: 20220628

REACTIONS (2)
  - Nausea [Recovered/Resolved]
  - Tracheo-oesophageal fistula [Not Recovered/Not Resolved]

NARRATIVE: CASE EVENT DATE: 20220705
